FAERS Safety Report 12809557 (Version 1)
Quarter: 2016Q4

REPORT INFORMATION
  Report Type: Spontaneous
  Country: PL (occurrence: PL)
  Receive Date: 20161005
  Receipt Date: 20161005
  Transmission Date: 20170207
  Serious: Yes (Other)
  Sender: FDA-Public Use
  Company Number: PL-ABBVIE-16K-129-1741725-00

PATIENT
  Age: 44 Year
  Sex: Male
  Weight: 80 kg

DRUGS (2)
  1. HUMIRA [Suspect]
     Active Substance: ADALIMUMAB
     Indication: PSORIATIC ARTHROPATHY
     Dosage: UNSPECIFIED
     Route: 058
     Dates: start: 20160706, end: 20160914
  2. DICLAC [Suspect]
     Active Substance: DICLOFENAC
     Indication: PRODUCT USED FOR UNKNOWN INDICATION
     Dosage: UNSPECIFIED
     Route: 048

REACTIONS (4)
  - Rash [Recovering/Resolving]
  - Skin lesion [Recovering/Resolving]
  - Nail disorder [Recovering/Resolving]
  - Dermatitis exfoliative [Recovering/Resolving]

NARRATIVE: CASE EVENT DATE: 20160908
